FAERS Safety Report 22287560 (Version 1)
Quarter: 2023Q2

REPORT INFORMATION
  Report Type: Spontaneous
  Country: US (occurrence: US)
  Receive Date: 20230505
  Receipt Date: 20230505
  Transmission Date: 20230722
  Serious: Yes (Other)
  Sender: FDA-Public Use
  Company Number: US-BAXTER-2023BAX020373

PATIENT
  Age: 83 Year
  Sex: Male

DRUGS (5)
  1. DOXORUBICIN [Suspect]
     Active Substance: DOXORUBICIN
     Indication: Diffuse large B-cell lymphoma stage I
     Dosage: R-MINICHOP CONSISTING OF 3-WEEK INTERVALS OF 25 MG/M2 ON DAY 1 OF EACH CYCLE
     Route: 042
  2. CYCLOPHOSPHAMIDE [Suspect]
     Active Substance: CYCLOPHOSPHAMIDE
     Indication: Diffuse large B-cell lymphoma stage I
     Dosage: R-MINICHOP CONSISTING OF 3-WEEK INTERVALS OF 400 MG/M2 ON DAY 1 OF EACH CYCLE
     Route: 042
  3. PREDNISOLONE [Suspect]
     Active Substance: PREDNISOLONE
     Indication: Diffuse large B-cell lymphoma stage I
     Dosage: R-MINICHOP CONSISTING OF 3-WEEK INTERVALS OF 40 MG/M2 ON DAYS 1-5
     Route: 048
  4. RITUXIMAB [Suspect]
     Active Substance: RITUXIMAB
     Indication: Diffuse large B-cell lymphoma stage I
     Dosage: R-MINICHOP CONSISTING OF 3-WEEK INTERVALS OF 375 MG/M2 ON DAY 1 OF EACH CYCLE
     Route: 042
  5. VINCRISTINE [Suspect]
     Active Substance: VINCRISTINE
     Indication: Diffuse large B-cell lymphoma stage I
     Dosage: R-MINICHOP CONSISTING OF 3-WEEK INTERVALS OF 1 MG ON DAY 1 OF EACH CYCLE
     Route: 042

REACTIONS (1)
  - Pancytopenia [Recovered/Resolved]
